FAERS Safety Report 7547122-4 (Version None)
Quarter: 2011Q2

REPORT INFORMATION
  Report Type: 
  Country: None (occurrence: None)
  Receive Date: 20110524
  Receipt Date: 20110128
  Transmission Date: 20111010
  Serious: No
  Sender: FDA-Public Use
  Company Number: 026539

PATIENT
  Sex: Female
  Weight: 61.2 kg

DRUGS (3)
  1. CIMZIA [Suspect]
     Indication: CROHN'S DISEASE
     Dosage: (400 MG 1X/MONTH SUBCUTANEOUS)
     Route: 058
     Dates: start: 20100603
  2. MULTI-VITAMINS [Concomitant]
  3. IMURAN [Concomitant]

REACTIONS (1)
  - ALOPECIA [None]
